FAERS Safety Report 7025335-8 (Version None)
Quarter: 2010Q4

REPORT INFORMATION
  Report Type: 
  Country: None (occurrence: None)
  Receive Date: 20101001
  Receipt Date: 20100917
  Transmission Date: 20110411
  Serious: Yes (Other)
  Sender: FDA-Public Use
  Company Number: PHHY2010JP62300

PATIENT

DRUGS (1)
  1. ZOMETA [Suspect]
     Indication: NEOPLASM PROGRESSION
     Dosage: UNK

REACTIONS (1)
  - RENAL DISORDER [None]
